FAERS Safety Report 16441716 (Version 1)
Quarter: 2019Q2

REPORT INFORMATION
  Report Type: Report from Study
  Country: US (occurrence: US)
  Receive Date: 20190617
  Receipt Date: 20190617
  Transmission Date: 20190711
  Serious: Yes (Hospitalization)
  Sender: FDA-Public Use
  Company Number: US-US WORLDMEDS, LLC-USW201805-000834

PATIENT
  Age: 78 Year
  Sex: Male
  Weight: 80.73 kg

DRUGS (18)
  1. CELEBREX [Concomitant]
     Active Substance: CELECOXIB
  2. FLONASE [Concomitant]
     Active Substance: FLUTICASONE PROPIONATE
  3. DETROL LA [Concomitant]
     Active Substance: TOLTERODINE TARTRATE
  4. PLAVIX [Concomitant]
     Active Substance: CLOPIDOGREL BISULFATE
  5. COLACE [Concomitant]
     Active Substance: DOCUSATE SODIUM
  6. MIRALAX [Concomitant]
     Active Substance: POLYETHYLENE GLYCOL 3350
  7. LIPITOR [Concomitant]
     Active Substance: ATORVASTATIN CALCIUM
  8. TESSALON [Concomitant]
     Active Substance: BENZONATATE
  9. CARBIDOPA/LEVODOPA [Concomitant]
     Active Substance: CARBIDOPA\LEVODOPA
  10. EXELON [Concomitant]
     Active Substance: RIVASTIGMINE TARTRATE
  11. SINGULAIR [Concomitant]
     Active Substance: MONTELUKAST SODIUM
  12. LYRICA [Concomitant]
     Active Substance: PREGABALIN
  13. APOKYN [Suspect]
     Active Substance: APOMORPHINE HYDROCHLORIDE
  14. EFFEXOR XR [Concomitant]
     Active Substance: VENLAFAXINE HYDROCHLORIDE
  15. ASA [Concomitant]
     Active Substance: ASPIRIN
  16. FLOMAX [Concomitant]
     Active Substance: TAMSULOSIN HYDROCHLORIDE
  17. APOKYN [Suspect]
     Active Substance: APOMORPHINE HYDROCHLORIDE
     Indication: PARKINSON^S DISEASE
     Route: 058
     Dates: start: 20180110
  18. COMTAN [Concomitant]
     Active Substance: ENTACAPONE

REACTIONS (6)
  - Back pain [Recovered/Resolved]
  - Paraesthesia [Recovered/Resolved]
  - Hypoaesthesia [Recovered/Resolved]
  - Pneumonia bacterial [Recovered/Resolved]
  - Drug ineffective [Unknown]
  - Freezing phenomenon [Recovered/Resolved]

NARRATIVE: CASE EVENT DATE: 20180517
